FAERS Safety Report 16804095 (Version 3)
Quarter: 2020Q2

REPORT INFORMATION
  Report Type: Report from Study
  Country: US (occurrence: US)
  Receive Date: 20190913
  Receipt Date: 20200526
  Transmission Date: 20200713
  Serious: Yes (Other)
  Sender: FDA-Public Use
  Company Number: US-ASTELLAS-2019US036237

PATIENT
  Sex: Male

DRUGS (1)
  1. ENZALUTAMIDE [Suspect]
     Active Substance: ENZALUTAMIDE
     Indication: PROSTATE CANCER
     Route: 048
     Dates: start: 20190820

REACTIONS (28)
  - Increased appetite [Recovering/Resolving]
  - Hot flush [Recovering/Resolving]
  - Defaecation urgency [Unknown]
  - Rash [Unknown]
  - Nail bed infection [Unknown]
  - Alopecia [Unknown]
  - Nocturia [Unknown]
  - Fatigue [Unknown]
  - Rhinorrhoea [Unknown]
  - Malaise [Unknown]
  - Skin injury [Unknown]
  - Pulmonary congestion [Unknown]
  - Depression [Unknown]
  - Fat redistribution [Unknown]
  - Musculoskeletal chest pain [Unknown]
  - Pain in extremity [Unknown]
  - Testicular atrophy [Unknown]
  - Feeling of despair [Unknown]
  - Taste disorder [Unknown]
  - Psoriasis [Unknown]
  - Skin disorder [Unknown]
  - Arthritis [Unknown]
  - Weight increased [Unknown]
  - Urinary tract infection [Unknown]
  - Feminisation acquired [Unknown]
  - Psoriatic arthropathy [Unknown]
  - Memory impairment [Unknown]
  - Gynaecomastia [Unknown]
